FAERS Safety Report 6444420-2 (Version None)
Quarter: 2009Q4

REPORT INFORMATION
  Report Type: 
  Country: None (occurrence: None)
  Receive Date: 20091117
  Receipt Date: 20091117
  Transmission Date: 20100525
  Serious: No
  Sender: FDA-Public Use
  Company Number: None

PATIENT
  Age: 83 Year
  Sex: Male

DRUGS (1)
  1. FLUORESCEIN [Suspect]
     Indication: ANGIOGRAM
     Dates: start: 20091001, end: 20091030

REACTIONS (1)
  - DRUG HYPERSENSITIVITY [None]
